FAERS Safety Report 8544470-6 (Version None)
Quarter: 2012Q3

REPORT INFORMATION
  Report Type: 
  Country: None (occurrence: None)
  Receive Date: 20120717
  Receipt Date: 20120705
  Transmission Date: 20120928
  Serious: Yes (Other)
  Sender: FDA-Public Use
  Company Number: FK201201844

PATIENT
  Age: 78 Year
  Sex: Male

DRUGS (2)
  1. AMIODARONE HCL [Suspect]
     Indication: CORONARY ARTERY BYPASS
  2. SIMVASTATIN [Concomitant]

REACTIONS (2)
  - FALL [None]
  - RHABDOMYOLYSIS [None]
